FAERS Safety Report 10163358 (Version 1)
Quarter: 2014Q2

REPORT INFORMATION
  Report Type: Spontaneous
  Country: US (occurrence: US)
  Receive Date: 20140509
  Receipt Date: 20140509
  Transmission Date: 20141212
  Serious: Yes (Other)
  Sender: FDA-Public Use
  Company Number: US-BAYER-2014-067493

PATIENT
  Age: 38 Year
  Sex: Female

DRUGS (17)
  1. YAZ [Suspect]
  2. YASMIN [Suspect]
  3. OCELLA [Suspect]
  4. OSCAL [Concomitant]
     Dosage: 1250 MG-200 ONE TIME DAILY WITH MEALS
     Route: 048
  5. HYDROCODONE/ACETAMINOPHEN [Concomitant]
     Dosage: UNK
     Dates: start: 20121005
  6. ERGOCALCIFEROL [Concomitant]
     Dosage: 50,000 UNIT,1 CAPSULE ONE TIME WEEKLY
     Route: 048
  7. CEFAZOLIN [Concomitant]
     Dosage: 1 G ONE TIME
     Route: 042
  8. SCOPOLAMIN [Concomitant]
     Dosage: 1.5 MG PATCH
     Route: 062
  9. FAMOTIDINE [Concomitant]
     Dosage: 20 MG ONE TIME
     Route: 048
  10. LIDOCAINE [Concomitant]
     Dosage: 2 MG ONE TIME
     Route: 058
  11. MELOXICAM [Concomitant]
     Dosage: 15 MG ONE TIME
     Route: 048
  12. ACETAMINOPHEN [Concomitant]
     Dosage: 100 MG ONE TIME
     Route: 048
  13. BUPIVACAINE [Concomitant]
     Dosage: 1375 MG ONE TIME
  14. MARCAINE WITH EPINEPHRINE [Concomitant]
     Dosage: 20 ML, UNK
  15. CLINDAMYCIN HYDROCHLORIDE [Concomitant]
     Dosage: 300 MG, UNK
  16. FLUOXETINE HCL [Concomitant]
     Dosage: 40 MG, UNK
  17. PROZAC [Concomitant]
     Dosage: DAILY
     Route: 048

REACTIONS (1)
  - Pulmonary embolism [None]
